FAERS Safety Report 20796055 (Version 1)
Quarter: 2022Q2

REPORT INFORMATION
  Report Type: Spontaneous
  Country: CN (occurrence: CN)
  Receive Date: 20220506
  Receipt Date: 20220506
  Transmission Date: 20220720
  Serious: Yes (Hospitalization)
  Sender: FDA-Public Use
  Company Number: CN-ASPEN-GLO2022CN001331

PATIENT

DRUGS (16)
  1. LEUKERAN [Suspect]
     Active Substance: CHLORAMBUCIL
     Indication: Chronic lymphocytic leukaemia
     Dosage: 32 MG, QD
     Route: 048
     Dates: start: 20211216, end: 20211216
  2. LEUKERAN [Suspect]
     Active Substance: CHLORAMBUCIL
     Dosage: 32 MG, QD
     Route: 048
     Dates: start: 20211229, end: 20211229
  3. LEUKERAN [Suspect]
     Active Substance: CHLORAMBUCIL
     Dosage: 32 MG, QD
     Route: 048
     Dates: start: 20220113, end: 20220113
  4. LEUKERAN [Suspect]
     Active Substance: CHLORAMBUCIL
     Dosage: 32 MG, QD
     Route: 048
     Dates: start: 20220127, end: 20220127
  5. LEUKERAN [Suspect]
     Active Substance: CHLORAMBUCIL
     Dosage: 32 MG, QD
     Route: 048
     Dates: start: 20220210, end: 20220210
  6. RITUXIMAB [Suspect]
     Active Substance: RITUXIMAB
     Indication: Chronic lymphocytic leukaemia
     Dosage: 680 MG, QD
     Route: 041
     Dates: start: 20211216, end: 20211216
  7. RITUXIMAB [Suspect]
     Active Substance: RITUXIMAB
     Dosage: 890 MG, QD
     Route: 041
     Dates: start: 20220113, end: 20220113
  8. RITUXIMAB [Suspect]
     Active Substance: RITUXIMAB
     Dosage: 850 MG, QD
     Route: 041
     Dates: start: 20220210, end: 20220210
  9. METFORMIN [Concomitant]
     Active Substance: METFORMIN HYDROCHLORIDE
     Indication: Diabetes mellitus
     Dosage: 2 DOSAGE FORM, BID
     Route: 048
  10. ACARBOSE [Concomitant]
     Active Substance: ACARBOSE
     Indication: Diabetes mellitus
     Dosage: 2 DOSAGE FORM, BID
     Route: 048
  11. COMPOUND PARACETAMOL [Concomitant]
     Indication: Pharyngeal disorder
     Dosage: UNK
     Route: 065
  12. ENTECAVIR [Concomitant]
     Active Substance: ENTECAVIR
     Indication: Prophylaxis
     Dosage: 0.5 MG, QD
     Route: 048
     Dates: start: 20220122
  13. CEFODIZIME SODIUM [Concomitant]
     Active Substance: CEFODIZIME SODIUM
     Indication: Cough
     Dosage: 2 G, BID
     Route: 041
     Dates: start: 20220206, end: 20220208
  14. PROMETHAZINE HYDROCHLORIDE [Concomitant]
     Active Substance: PROMETHAZINE HYDROCHLORIDE
     Indication: Prophylaxis
     Dosage: 25 MG, QD
     Route: 041
     Dates: start: 20220210, end: 20220210
  15. DEXAMETHASONE SODIUM PHOSPHATE [Concomitant]
     Active Substance: DEXAMETHASONE SODIUM PHOSPHATE
     Indication: Prophylaxis
     Dosage: 5 MG, QD
     Route: 041
     Dates: start: 20220210, end: 20220210
  16. ROXATIDINE ACETATE HYDROCHLORIDE [Concomitant]
     Active Substance: ROXATIDINE ACETATE HYDROCHLORIDE
     Indication: Prophylaxis
     Dosage: 75 MG, QD
     Route: 041
     Dates: start: 20220210, end: 20220210

REACTIONS (3)
  - Rash [Recovering/Resolving]
  - Blood lactate dehydrogenase increased [Unknown]
  - Ulcer [Recovering/Resolving]

NARRATIVE: CASE EVENT DATE: 20220127
